FAERS Safety Report 24200132 (Version 1)
Quarter: 2024Q3

REPORT INFORMATION
  Report Type: Other
  Country: US (occurrence: US)
  Receive Date: 20240812
  Receipt Date: 20240812
  Transmission Date: 20241017
  Serious: Yes (Hospitalization)
  Sender: ALVOGEN
  Company Number: US-ALVOGEN-2024095189

PATIENT
  Age: 75 Year
  Sex: Male

DRUGS (5)
  1. FLECAINIDE [Suspect]
     Active Substance: FLECAINIDE
     Indication: Atrial fibrillation
  2. FLECAINIDE [Suspect]
     Active Substance: FLECAINIDE
     Indication: Atrial fibrillation
     Dosage: 100?MG TWICE A DAY
  3. FLECAINIDE [Suspect]
     Active Substance: FLECAINIDE
     Indication: Atrial fibrillation
     Dosage: 200?MG TWICE A DAY
  4. APIXABAN [Concomitant]
     Active Substance: APIXABAN
     Indication: Anticoagulant therapy
  5. METOPROLOL TARTRATE [Concomitant]
     Active Substance: METOPROLOL TARTRATE
     Indication: Product used for unknown indication

REACTIONS (11)
  - Toxicity to various agents [Unknown]
  - Systolic dysfunction [Recovering/Resolving]
  - Ventricular hypokinesia [Unknown]
  - Device pacing issue [Unknown]
  - Asthenia [Unknown]
  - Palpitations [Unknown]
  - Ejection fraction decreased [Recovering/Resolving]
  - Dyspnoea [Unknown]
  - Tachycardia [Recovered/Resolved]
  - Electrocardiogram QRS complex prolonged [Recovering/Resolving]
  - Hypotension [Unknown]
